FAERS Safety Report 19510932 (Version 1)
Quarter: 2021Q3

REPORT INFORMATION
  Report Type: Spontaneous
  Country: US (occurrence: US)
  Receive Date: 20210709
  Receipt Date: 20210709
  Transmission Date: 20211014
  Serious: No
  Sender: FDA-Public Use
  Company Number: US-APOTEX-2021AP013690

PATIENT
  Sex: Male

DRUGS (2)
  1. MODAFINIL TABLETS USP [Suspect]
     Active Substance: MODAFINIL
     Dosage: UNK; TOOK IT ALL AT ONCE
     Route: 065
  2. MODAFINIL TABLETS USP [Suspect]
     Active Substance: MODAFINIL
     Indication: SLEEP DISORDER
     Dosage: 1 DOSAGE FORM, BID
     Route: 065

REACTIONS (2)
  - Drug ineffective [Unknown]
  - Inappropriate schedule of product administration [Unknown]
